FAERS Safety Report 25705100 (Version 1)
Quarter: 2025Q3

REPORT INFORMATION
  Report Type: Spontaneous
  Country: US (occurrence: None)
  Receive Date: 20250819
  Receipt Date: 20250819
  Transmission Date: 20251020
  Serious: Yes (Death)
  Sender: FDA-CTU
  Company Number: None

PATIENT
  Age: 42 Year
  Sex: Male
  Weight: 75 kg

DRUGS (1)
  1. CABOTEGRAVIR [Suspect]
     Active Substance: CABOTEGRAVIR
     Indication: Homosexuality
     Route: 030
     Dates: start: 20250109, end: 20250814

REACTIONS (1)
  - Death [None]

NARRATIVE: CASE EVENT DATE: 20250814
